FAERS Safety Report 14009029 (Version 1)
Quarter: 2017Q3

REPORT INFORMATION
  Report Type: Spontaneous
  Country: MX (occurrence: MX)
  Receive Date: 20170925
  Receipt Date: 20170925
  Transmission Date: 20171128
  Serious: Yes (Death, Other)
  Sender: FDA-Public Use
  Company Number: MX-TEVA-808244ISR

PATIENT
  Age: 89 Year
  Sex: Female
  Weight: 75 kg

DRUGS (1)
  1. AZILECT [Suspect]
     Active Substance: RASAGILINE MESYLATE
     Indication: PARKINSON^S DISEASE
     Dosage: 1 MILLIGRAM DAILY;
     Route: 048
     Dates: start: 20141002

REACTIONS (3)
  - Respiratory failure [Fatal]
  - Cardiac failure [Unknown]
  - Somnolence [Unknown]

NARRATIVE: CASE EVENT DATE: 201612
